FAERS Safety Report 9546988 (Version 1)
Quarter: 2013Q3

REPORT INFORMATION
  Report Type: Spontaneous
  Country: US (occurrence: None)
  Receive Date: 20130920
  Receipt Date: 20130920
  Transmission Date: 20140515
  Serious: No
  Sender: FDA-Public Use
  Company Number: None

PATIENT
  Sex: 0

DRUGS (2)
  1. PHENYTOIN ( PHENYTOIN) [Suspect]
     Dosage: SUSPENSION ORAL 100 MG/ 4 ML UNIT DOSE CUP 4 ML
     Route: 048
  2. NYSTATIN ( NYSTATIN) [Suspect]
     Dosage: SUSPENSION ORAL 500,000 UNITS/5 ML UNIT DOSE CUP 5 ML
     Route: 048

REACTIONS (1)
  - Circumstance or information capable of leading to medication error [None]
